FAERS Safety Report 7721586-5 (Version None)
Quarter: 2011Q3

REPORT INFORMATION
  Report Type: 
  Country: None (occurrence: None)
  Receive Date: 20110831
  Receipt Date: 20110830
  Transmission Date: 20111222
  Serious: Yes (Hospitalization)
  Sender: FDA-Public Use
  Company Number: JP-ABBOTT-11P-087-0729953-00

PATIENT
  Sex: Male
  Weight: 85.6 kg

DRUGS (11)
  1. ROSUVASTATIN CALCIUM [Concomitant]
     Indication: HYPERLIPIDAEMIA
     Route: 048
  2. HUMIRA [Suspect]
     Route: 058
     Dates: start: 20101215, end: 20101215
  3. HUMIRA [Suspect]
     Route: 058
     Dates: start: 20101228, end: 20110311
  4. ROSUVASTATIN CALCIUM [Concomitant]
     Indication: PROPHYLAXIS
  5. MESALAMINE [Concomitant]
     Indication: CROHN'S DISEASE
     Route: 048
  6. HUMIRA [Suspect]
     Indication: CROHN'S DISEASE
     Route: 058
     Dates: start: 20101201, end: 20101201
  7. RABEPRAZOLE SODIUM [Concomitant]
     Indication: GASTRITIS PROPHYLAXIS
     Route: 048
  8. FERROUS SULFATE HYDRATE [Concomitant]
     Indication: ANAEMIA PROPHYLAXIS
     Route: 048
     Dates: start: 20110125
  9. LEVOFLOXACIN HYDRATE [Concomitant]
     Indication: INFECTION
     Route: 048
     Dates: start: 20110222, end: 20110225
  10. LEVOFLOXACIN HYDRATE [Concomitant]
     Indication: PROPHYLAXIS
  11. CLOSTRIDIUM BUTYRICUM [Concomitant]
     Indication: PROPHYLAXIS AGAINST DIARRHOEA
     Route: 048

REACTIONS (3)
  - FREQUENT BOWEL MOVEMENTS [None]
  - WEIGHT DECREASED [None]
  - DRUG INEFFECTIVE [None]
